FAERS Safety Report 20535129 (Version 1)
Quarter: 2022Q1

REPORT INFORMATION
  Report Type: Report from Study
  Country: KR (occurrence: None)
  Receive Date: 20220302
  Receipt Date: 20220302
  Transmission Date: 20220423
  Serious: Yes (Other)
  Sender: FDA-Public Use
  Company Number: KR-ROCHE-3028104

PATIENT
  Age: 65 Year
  Sex: Female
  Weight: 54 kg

DRUGS (11)
  1. ATEZOLIZUMAB [Suspect]
     Active Substance: ATEZOLIZUMAB
     Indication: Non-small cell lung cancer metastatic
     Dosage: ON 28/DEC/2021, LAST DOSE WAS ADMINISTERED PRIOR TO AE.
     Route: 041
     Dates: start: 20201030
  2. BEVACIZUMAB [Suspect]
     Active Substance: BEVACIZUMAB
     Indication: Non-small cell lung cancer metastatic
     Dosage: ON 28/DEC/2021, LAST DOSE WAS ADMINISTERED PRIOR TO AE.
     Route: 042
     Dates: start: 20201030
  3. PACLITAXEL [Suspect]
     Active Substance: PACLITAXEL
     Indication: Non-small cell lung cancer metastatic
     Dosage: ON 05/JAN/2021, LAST DOSE WAS ADMINISTERED PRIOR TO AE.
     Route: 042
     Dates: start: 20201030
  4. CARBOPLATIN [Suspect]
     Active Substance: CARBOPLATIN
     Indication: Non-small cell lung cancer metastatic
     Dosage: ON 05/JAN/2021, LAST DOSE WAS ADMINISTERED PRIOR TO AE.
     Route: 042
     Dates: start: 20201030
  5. ALPRAZOLAM [Concomitant]
     Active Substance: ALPRAZOLAM
     Dates: start: 20210530
  6. SYNTHROID [Concomitant]
     Active Substance: LEVOTHYROXINE SODIUM
     Dates: start: 20211014
  7. ATACAND [Concomitant]
     Active Substance: CANDESARTAN CILEXETIL
     Dates: start: 20211117
  8. NORVASC [Concomitant]
     Active Substance: AMLODIPINE BESYLATE
     Dates: start: 20220211
  9. CARVEDILOL [Concomitant]
     Active Substance: CARVEDILOL
     Dates: start: 20220211
  10. NICARDIPINE HYDROCHLORIDE [Concomitant]
     Active Substance: NICARDIPINE HYDROCHLORIDE
     Dates: start: 20220211
  11. ADALAT [Concomitant]
     Active Substance: NIFEDIPINE
     Dates: start: 20220211

REACTIONS (1)
  - Thrombotic microangiopathy [Not Recovered/Not Resolved]

NARRATIVE: CASE EVENT DATE: 20211111
